FAERS Safety Report 22519470 (Version 1)
Quarter: 2023Q2

REPORT INFORMATION
  Report Type: Spontaneous
  Country: US (occurrence: None)
  Receive Date: 20230602
  Receipt Date: 20230602
  Transmission Date: 20230722
  Serious: Yes (Disabling)
  Sender: FDA-Public Use
  Company Number: None

PATIENT
  Age: 63 Year
  Sex: Female
  Weight: 58.5 kg

DRUGS (11)
  1. COSENTYX [Suspect]
     Active Substance: SECUKINUMAB
     Indication: Psoriasis
     Dosage: OTHER FREQUENCY : EVERY 4 WEEKS;?
     Route: 058
     Dates: start: 20220301
  2. LAMICTAL [Concomitant]
     Active Substance: LAMOTRIGINE
  3. BUSPIRONE [Concomitant]
     Active Substance: BUSPIRONE HYDROCHLORIDE
  4. UNSPECIFIED INGREDIENT [Concomitant]
     Active Substance: UNSPECIFIED INGREDIENT
  5. TRAZODONE [Concomitant]
     Active Substance: TRAZODONE HYDROCHLORIDE
  6. INGREZZA [Concomitant]
     Active Substance: VALBENAZINE
  7. CALCIUM [Concomitant]
     Active Substance: CALCIUM
  8. VITAMIN D NOS [Concomitant]
     Active Substance: VITAMIN D NOS
  9. DRONABINOL [Concomitant]
     Active Substance: DRONABINOL
  10. MELATONIN [Concomitant]
     Active Substance: MELATONIN
  11. MINERALS\VITAMINS [Concomitant]
     Active Substance: MINERALS\VITAMINS

REACTIONS (5)
  - Intentional product use issue [None]
  - Arthritis [None]
  - Arthritis [None]
  - Psoriasis [None]
  - Symptom recurrence [None]

NARRATIVE: CASE EVENT DATE: 20220301
